FAERS Safety Report 7183149-2 (Version None)
Quarter: 2010Q4

REPORT INFORMATION
  Report Type: 
  Country: None (occurrence: None)
  Receive Date: 20101222
  Receipt Date: 20100518
  Transmission Date: 20110411
  Serious: No
  Sender: FDA-Public Use
  Company Number: US-PFIZER INC-2010062412

PATIENT
  Sex: Male
  Weight: 72.109 kg

DRUGS (2)
  1. HALCION [Suspect]
     Dosage: UNK
  2. TRIAZOLAM [Suspect]
     Indication: INSOMNIA
     Dosage: 0.125 MG, UNK
     Route: 048

REACTIONS (2)
  - DRUG INEFFECTIVE [None]
  - DRUG PRESCRIBING ERROR [None]
